FAERS Safety Report 24922894 (Version 1)
Quarter: 2025Q1

REPORT INFORMATION
  Report Type: Report from Study
  Country: US (occurrence: US)
  Receive Date: 20250204
  Receipt Date: 20250204
  Transmission Date: 20250408
  Serious: Yes (Other)
  Sender: PFIZER
  Company Number: US-PFIZER INC-202400332334

PATIENT
  Age: 49 Year
  Sex: Male

DRUGS (10)
  1. BRAFTOVI [Suspect]
     Active Substance: ENCORAFENIB
     Indication: Colorectal cancer
     Dosage: 300 MG, DAILY (4 CAPSULES DAILY)
     Route: 048
     Dates: start: 20241210
  2. BRAFTOVI [Suspect]
     Active Substance: ENCORAFENIB
     Dosage: 300 MG, DAILY (FOUR 75MG CAPSULES ORALLY DAILY)
     Route: 048
     Dates: start: 20241210
  3. ERBITUX [Concomitant]
     Active Substance: CETUXIMAB
  4. POTASSIUM [Concomitant]
     Active Substance: POTASSIUM
  5. FENTANYL [Concomitant]
     Active Substance: FENTANYL
  6. OMEPRAZOLE [Concomitant]
     Active Substance: OMEPRAZOLE
  7. MORPHINE [Concomitant]
     Active Substance: MORPHINE
  8. XARELTO [Concomitant]
     Active Substance: RIVAROXABAN
  9. METOPROLOL [Concomitant]
     Active Substance: METOPROLOL
  10. MAGNESIUM [Concomitant]
     Active Substance: MAGNESIUM

REACTIONS (13)
  - Blood iron decreased [Recovering/Resolving]
  - Haemoglobin decreased [Recovering/Resolving]
  - Headache [Unknown]
  - Decreased appetite [Unknown]
  - Arthralgia [Recovering/Resolving]
  - Pain in extremity [Recovering/Resolving]
  - Flatulence [Unknown]
  - Blood creatinine abnormal [Recovering/Resolving]
  - Blood magnesium abnormal [Recovering/Resolving]
  - Melanocytic naevus [Recovering/Resolving]
  - Rash pruritic [Recovering/Resolving]
  - Fatigue [Recovering/Resolving]
  - Swelling [Recovering/Resolving]
